FAERS Safety Report 11592253 (Version 1)
Quarter: 2015Q4

REPORT INFORMATION
  Report Type: Spontaneous
  Country: BR (occurrence: BR)
  Receive Date: 20151005
  Receipt Date: 20151005
  Transmission Date: 20160304
  Serious: Yes (Hospitalization)
  Sender: FDA-Public Use
  Company Number: BR-BAYER-2015-429563

PATIENT
  Age: 0 Day
  Sex: Female
  Weight: 6.88 kg

DRUGS (2)
  1. YAZ [Suspect]
     Active Substance: DROSPIRENONE\ETHINYL ESTRADIOL
     Dosage: UNK
     Route: 064
     Dates: end: 20140915
  2. YAZ [Suspect]
     Active Substance: DROSPIRENONE\ETHINYL ESTRADIOL
     Dosage: UNK
     Route: 064
     Dates: end: 20140915

REACTIONS (2)
  - Low birth weight baby [None]
  - Premature baby [Recovered/Resolved]

NARRATIVE: CASE EVENT DATE: 20150428
